FAERS Safety Report 13378592 (Version 4)
Quarter: 2018Q4

REPORT INFORMATION
  Report Type: Spontaneous
  Country: FR (occurrence: FR)
  Receive Date: 20170328
  Receipt Date: 20181204
  Transmission Date: 20190204
  Serious: Yes (Hospitalization, Congenital Anomaly, Other)
  Sender: FDA-Public Use
  Company Number: FR-ABBVIE-17P-056-1923655-00

PATIENT
  Sex: Male

DRUGS (1)
  1. DEPAKINE CHRONO [Suspect]
     Active Substance: VALPROATE SODIUM
     Indication: MATERNAL EXPOSURE TIMING UNSPECIFIED
     Route: 064

REACTIONS (16)
  - Syndactyly [Unknown]
  - Enuresis [Recovered/Resolved]
  - Foetal anticonvulsant syndrome [Unknown]
  - Knee deformity [Unknown]
  - Pyloric stenosis [Unknown]
  - Learning disorder [Unknown]
  - Speech disorder developmental [Unknown]
  - Dysmorphism [Unknown]
  - Somnambulism [Recovered/Resolved]
  - Overweight [Unknown]
  - Scoliosis [Unknown]
  - Brachydactyly [Unknown]
  - Foot deformity [Unknown]
  - Nightmare [Recovered/Resolved]
  - Speech disorder [Unknown]
  - Foetal exposure during pregnancy [Unknown]

NARRATIVE: CASE EVENT DATE: 1992
